FAERS Safety Report 21237663 (Version 3)
Quarter: 2023Q1

REPORT INFORMATION
  Report Type: Spontaneous
  Country: US (occurrence: US)
  Receive Date: 20220822
  Receipt Date: 20230201
  Transmission Date: 20230417
  Serious: Yes (Other)
  Sender: FDA-Public Use
  Company Number: US-BRISTOL-MYERS SQUIBB COMPANY-2022-092258

PATIENT
  Age: 88 Year
  Sex: Male

DRUGS (2)
  1. REVLIMID [Suspect]
     Active Substance: LENALIDOMIDE
     Indication: Plasma cell myeloma
     Dosage: 1 CAPSULE BY MOUTH EVERY DAY FOR 21 DAYS, OFF FOR 7 DAYS
     Route: 048
     Dates: start: 20210115
  2. REVLIMID [Suspect]
     Active Substance: LENALIDOMIDE
     Dosage: 5 MG, 1 CAPSULE DAILY FOR 21 DAYS FOLLOWED BY 7 DAYS OFF

REACTIONS (1)
  - Tooth disorder [Unknown]
